FAERS Safety Report 6341808-5 (Version None)
Quarter: 2009Q3

REPORT INFORMATION
  Report Type: 
  Country: None (occurrence: None)
  Receive Date: 20090904
  Receipt Date: 20090827
  Transmission Date: 20100115
  Serious: Yes (Death, Hospitalization)
  Sender: FDA-Public Use
  Company Number: US-BAXTER-2009BH012905

PATIENT
  Age: 35 Year
  Sex: Female

DRUGS (1)
  1. DIANEAL [Suspect]
     Indication: PERITONEAL DIALYSIS
     Route: 033
     Dates: start: 20080101, end: 20090729

REACTIONS (7)
  - CARDIAC ARREST [None]
  - CHEST PAIN [None]
  - DIABETIC FOOT [None]
  - DIABETIC GANGRENE [None]
  - HYPOTENSION [None]
  - NAUSEA [None]
  - VOMITING [None]
